FAERS Safety Report 4753616-7 (Version None)
Quarter: 2005Q3

REPORT INFORMATION
  Report Type: 
  Country: None (occurrence: None)
  Receive Date: 20050826
  Receipt Date: 20050321
  Transmission Date: 20060218
  Serious: No
  Sender: FDA-Public Use
  Company Number: US-GLAXOSMITHKLINE-A0550647A

PATIENT
  Sex: Female

DRUGS (2)
  1. BECONASE [Suspect]
     Dosage: 25MCG TWICE PER DAY
     Route: 045
  2. CLEOCIN [Concomitant]

REACTIONS (3)
  - DRUG INEFFECTIVE [None]
  - PHARMACEUTICAL PRODUCT COMPLAINT [None]
  - SINUS HEADACHE [None]
